FAERS Safety Report 25700028 (Version 1)
Quarter: 2025Q3

REPORT INFORMATION
  Report Type: Spontaneous
  Country: US (occurrence: None)
  Receive Date: 20250818
  Receipt Date: 20250818
  Transmission Date: 20251020
  Serious: Yes (Disabling, Other)
  Sender: FDA-CTU
  Company Number: None

PATIENT
  Age: 54 Year
  Sex: Female
  Weight: 51.75 kg

DRUGS (3)
  1. UBLITUXIMAB-XIIY [Suspect]
     Active Substance: UBLITUXIMAB-XIIY
     Indication: Multiple sclerosis
     Route: 042
     Dates: start: 20250711, end: 20250725
  2. DILTIAZEM [Concomitant]
     Active Substance: DILTIAZEM
  3. BRIUMVI [Concomitant]
     Active Substance: UBLITUXIMAB-XIIY

REACTIONS (5)
  - Alopecia [None]
  - Fatigue [None]
  - Gait disturbance [None]
  - Memory impairment [None]
  - Hypertension [None]

NARRATIVE: CASE EVENT DATE: 20250730
